FAERS Safety Report 4420594-X (Version None)
Quarter: 2004Q2

REPORT INFORMATION
  Report Type: 
  Country: None (occurrence: None)
  Receive Date: 20040618
  Receipt Date: 20030509
  Transmission Date: 20050107
  Serious: Yes (Other)
  Sender: FDA-Public Use
  Company Number: US-SHR-03-007668

PATIENT

DRUGS (1)
  1. FLUDARA [Suspect]
     Indication: STEM CELL TRANSPLANT
     Dosage: 2 DOSES, INTRAVENOUS
     Route: 042

REACTIONS (3)
  - DYSPNOEA [None]
  - PNEUMONITIS [None]
  - PULMONARY TOXICITY [None]
